FAERS Safety Report 14070052 (Version 1)
Quarter: 2017Q4

REPORT INFORMATION
  Report Type: Spontaneous
  Country: CA (occurrence: CA)
  Receive Date: 20171011
  Receipt Date: 20171011
  Transmission Date: 20180321
  Serious: Yes (Other)
  Sender: FDA-Public Use
  Company Number: CA-BEH-2017084249

PATIENT

DRUGS (5)
  1. TYLENOL [Concomitant]
     Active Substance: ACETAMINOPHEN
     Indication: PREMEDICATION
  2. PRIVIGEN [Suspect]
     Active Substance: HUMAN IMMUNOGLOBULIN G
     Dosage: 200 ML, TOT (3RD BOTTLE)
     Route: 042
     Dates: start: 20170901, end: 20170901
  3. PRIVIGEN [Suspect]
     Active Substance: HUMAN IMMUNOGLOBULIN G
     Dosage: 200 ML, TOT (2ND BOTTLE)
     Route: 042
     Dates: start: 20170901, end: 20170901
  4. PRIVIGEN [Suspect]
     Active Substance: HUMAN IMMUNOGLOBULIN G
     Indication: PRODUCT USED FOR UNKNOWN INDICATION
     Dosage: 200 ML, TOT (1ST BOTTLE)
     Route: 042
     Dates: start: 20170901, end: 20170901
  5. PRIVIGEN [Suspect]
     Active Substance: HUMAN IMMUNOGLOBULIN G
     Dosage: 200 ML, TOT (4TH BOTTLE)
     Route: 042
     Dates: start: 20170901, end: 20170901

REACTIONS (1)
  - Tachycardia foetal [Unknown]

NARRATIVE: CASE EVENT DATE: 20170901
